FAERS Safety Report 5213648-1 (Version None)
Quarter: 2007Q1

REPORT INFORMATION
  Report Type: 
  Country: None (occurrence: None)
  Receive Date: 20070119
  Receipt Date: 20070108
  Transmission Date: 20070707
  Serious: Yes (Life-Threatening)
  Sender: FDA-Public Use
  Company Number: FR-PFIZER INC-2007003955

PATIENT
  Age: 84 Year
  Sex: Female

DRUGS (4)
  1. ATARAX [Suspect]
     Dosage: DAILY DOSE:25MG
     Route: 048
  2. ATENOLOL [Suspect]
     Dosage: DAILY DOSE:12.5MG
     Route: 048
  3. HYPERIUM [Suspect]
     Dosage: DAILY DOSE:1MG
     Route: 048
  4. PLAVIX [Suspect]
     Indication: ISCHAEMIC STROKE
     Dosage: TEXT:1 DF
     Route: 048
     Dates: start: 20060717, end: 20060908

REACTIONS (1)
  - AGRANULOCYTOSIS [None]
